FAERS Safety Report 26081953 (Version 2)
Quarter: 2025Q4

REPORT INFORMATION
  Report Type: Report from Study
  Country: CA (occurrence: CA)
  Receive Date: 20251124
  Receipt Date: 20251205
  Transmission Date: 20260117
  Serious: Yes (Other)
  Sender: ALEXION PHARMACEUTICALS
  Company Number: CA-AstraZeneca-CH-00997258A

PATIENT
  Sex: Female

DRUGS (1)
  1. OSIMERTINIB [Suspect]
     Active Substance: OSIMERTINIB
     Indication: Non-small cell lung cancer metastatic
     Dosage: 80 MILLIGRAM, QD
     Dates: start: 20251114

REACTIONS (6)
  - Myocardial infarction [Unknown]
  - Dysarthria [Unknown]
  - General physical health deterioration [Unknown]
  - Agitation [Unknown]
  - Somnolence [Unknown]
  - Depressed level of consciousness [Unknown]
